FAERS Safety Report 23080457 (Version 1)
Quarter: 2023Q4

REPORT INFORMATION
  Report Type: Spontaneous
  Country: US (occurrence: US)
  Receive Date: 20231018
  Receipt Date: 20231018
  Transmission Date: 20240109
  Serious: Yes (Hospitalization)
  Sender: FDA-Public Use
  Company Number: US-AMGEN-USASP2023181904

PATIENT
  Age: 48 Year
  Sex: Female

DRUGS (2)
  1. RITUXIMAB [Suspect]
     Active Substance: RITUXIMAB
     Indication: Rheumatoid arthritis
     Dosage: UNK
     Route: 065
  2. PREDNISONE [Concomitant]
     Active Substance: PREDNISONE
     Indication: Rheumatoid arthritis
     Dosage: UNK
     Route: 065

REACTIONS (6)
  - Deep vein thrombosis [Unknown]
  - Influenza like illness [Not Recovered/Not Resolved]
  - Mycoplasma infection [Recovering/Resolving]
  - Pulmonary embolism [Recovering/Resolving]
  - Pulmonary mass [Recovering/Resolving]
  - Infectious pleural effusion [Recovering/Resolving]
